FAERS Safety Report 10543486 (Version 1)
Quarter: 2014Q4

REPORT INFORMATION
  Report Type: Spontaneous
  Country: US (occurrence: US)
  Receive Date: 20141027
  Receipt Date: 20141027
  Transmission Date: 20150529
  Serious: No
  Sender: FDA-Public Use
  Company Number: US-PFIZER INC-2014291969

PATIENT
  Age: 32 Year
  Sex: Male
  Weight: 75 kg

DRUGS (2)
  1. VIAGRA [Suspect]
     Active Substance: SILDENAFIL CITRATE
     Dosage: 100 MG, UNK
     Route: 048
  2. VIAGRA [Suspect]
     Active Substance: SILDENAFIL CITRATE
     Dosage: 200 MG, UNK
     Route: 048
     Dates: start: 20141020

REACTIONS (5)
  - Extra dose administered [Unknown]
  - Male orgasmic disorder [Not Recovered/Not Resolved]
  - Erection increased [Not Recovered/Not Resolved]
  - Testicular pain [Not Recovered/Not Resolved]
  - Ejaculation disorder [Not Recovered/Not Resolved]

NARRATIVE: CASE EVENT DATE: 20141020
